FAERS Safety Report 6962775-7 (Version None)
Quarter: 2010Q3

REPORT INFORMATION
  Report Type: 
  Country: None (occurrence: None)
  Receive Date: 20100902
  Receipt Date: 20100826
  Transmission Date: 20110219
  Serious: Yes (Other)
  Sender: FDA-Public Use
  Company Number: US-BRISTOL-MYERS SQUIBB COMPANY-15258312

PATIENT
  Age: 52 Year
  Sex: Female

DRUGS (1)
  1. KENALOG-40 [Suspect]
     Indication: ARTHRITIS
     Dosage: INJ
     Dates: start: 20100802

REACTIONS (3)
  - DYSGEUSIA [None]
  - ERYTHEMA [None]
  - SWELLING FACE [None]
